FAERS Safety Report 22896358 (Version 4)
Quarter: 2024Q1

REPORT INFORMATION
  Report Type: Spontaneous
  Country: US (occurrence: US)
  Receive Date: 20230901
  Receipt Date: 20240311
  Transmission Date: 20240410
  Serious: No
  Sender: FDA-Public Use
  Company Number: US-PFIZER INC-2020429331

PATIENT
  Age: 78 Year
  Sex: Female
  Weight: 86.168 kg

DRUGS (1)
  1. PREMPHASE [Suspect]
     Active Substance: ESTROGENS, CONJUGATED\MEDROXYPROGESTERONE ACETATE
     Indication: Menopause
     Dosage: TAKE 1 TABLET DAILY AS DIRECTED/TAKE 1 TABLET(S) EVERY DAY
     Route: 048

REACTIONS (3)
  - Hypoacusis [Unknown]
  - Hot flush [Unknown]
  - Therapeutic response unexpected [Unknown]
